FAERS Safety Report 22314958 (Version 1)
Quarter: 2023Q2

REPORT INFORMATION
  Report Type: Report from Study
  Country: US (occurrence: US)
  Receive Date: 20230512
  Receipt Date: 20230512
  Transmission Date: 20230722
  Serious: Yes (Other)
  Sender: FDA-Public Use
  Company Number: US-UCBSA-2023006718

PATIENT
  Age: 25 Year
  Sex: Female

DRUGS (1)
  1. CERTOLIZUMAB PEGOL [Suspect]
     Active Substance: CERTOLIZUMAB PEGOL
     Indication: Crohn^s disease
     Dosage: 400 MILLIGRAM, EV 4 WEEKS
     Route: 058
     Dates: start: 20230202, end: 20230330

REACTIONS (14)
  - Crohn^s disease [Recovered/Resolved]
  - Pyrexia [Recovering/Resolving]
  - Injection site rash [Recovering/Resolving]
  - Injection site haemorrhage [Recovering/Resolving]
  - Migraine [Recovering/Resolving]
  - Abdominal pain [Recovering/Resolving]
  - Burning sensation [Recovering/Resolving]
  - Upper respiratory tract infection [Recovered/Resolved]
  - Drug ineffective [Unknown]
  - Diarrhoea [Recovered/Resolved]
  - Psoriasis [Not Recovered/Not Resolved]
  - Lactose intolerance [Recovered/Resolved]
  - Food intolerance [Recovered/Resolved]
  - Inability to afford medication [Unknown]

NARRATIVE: CASE EVENT DATE: 20230202
